FAERS Safety Report 7656085-2 (Version None)
Quarter: 2011Q3

REPORT INFORMATION
  Report Type: 
  Country: None (occurrence: None)
  Receive Date: 20110804
  Receipt Date: 20110722
  Transmission Date: 20111222
  Serious: Yes (Other)
  Sender: FDA-Public Use
  Company Number: US-ELI_LILLY_AND_COMPANY-US201107007886

PATIENT
  Sex: Female

DRUGS (1)
  1. CYMBALTA [Suspect]
     Indication: DEPRESSION
     Dosage: 30 MG, UNK
     Dates: start: 20110630, end: 20110630

REACTIONS (4)
  - DRUG INEFFECTIVE [None]
  - TREMOR [None]
  - CHILLS [None]
  - DYSPNOEA [None]
